FAERS Safety Report 9105403 (Version 1)
Quarter: 2013Q1

REPORT INFORMATION
  Report Type: Spontaneous
  Country: IT (occurrence: IT)
  Receive Date: 20130220
  Receipt Date: 20130220
  Transmission Date: 20140127
  Serious: Yes (Hospitalization, Disabling)
  Sender: FDA-Public Use
  Company Number: IT-BRISTOL-MYERS SQUIBB COMPANY-17398777

PATIENT
  Age: 38 Year
  Sex: Male
  Weight: 81 kg

DRUGS (10)
  1. LYSODREN [Suspect]
     Indication: ADRENAL GLAND CANCER
     Dosage: 19MAY12-UNK,500MG?12OCT12-UNK,4.5GM?JAN2013-UNK,2GM(15DAYS) AND THEN 3G/D
     Dates: start: 20120519
  2. GEMCITABINE [Suspect]
     Indication: ADRENOCORTICAL CARCINOMA
  3. CAPECITABINE [Suspect]
     Indication: ADRENOCORTICAL CARCINOMA
  4. EUTIROX [Concomitant]
  5. HYDROCORTISONE [Concomitant]
  6. OXYCONTIN [Concomitant]
     Dosage: TABS
  7. NORVASC [Concomitant]
     Dosage: TABS
  8. LEXOTAN [Concomitant]
  9. LYRICA [Concomitant]
  10. TORVAST [Concomitant]
     Dosage: TABS

REACTIONS (3)
  - Dizziness [Recovered/Resolved]
  - Gait disturbance [Recovered/Resolved]
  - Asthenia [Recovered/Resolved]
